FAERS Safety Report 23853089 (Version 1)
Quarter: 2024Q2

REPORT INFORMATION
  Report Type: Spontaneous
  Country: CN (occurrence: CN)
  Receive Date: 20240514
  Receipt Date: 20240514
  Transmission Date: 20240715
  Serious: Yes (Other)
  Sender: FDA-Public Use
  Company Number: CN-GLANDPHARMA-CN-2024GLNLIT00116

PATIENT
  Age: 83 Year
  Sex: Female

DRUGS (1)
  1. ENOXAPARIN SODIUM [Suspect]
     Active Substance: ENOXAPARIN SODIUM
     Indication: Anticoagulant therapy
     Dosage: 25 UNITS
     Route: 065

REACTIONS (1)
  - Abdominal wall haematoma [Recovered/Resolved]
